FAERS Safety Report 18511908 (Version 34)
Quarter: 2024Q1

REPORT INFORMATION
  Report Type: Report from Study
  Country: DE (occurrence: DE)
  Receive Date: 20201117
  Receipt Date: 20240322
  Transmission Date: 20240410
  Serious: Yes (Hospitalization, Other)
  Sender: FDA-Public Use
  Company Number: DE-TAKEDA-2020TUS049020

PATIENT
  Age: 50 Year
  Sex: Female

DRUGS (47)
  1. VONICOG ALFA [Suspect]
     Active Substance: VONICOG ALFA
     Indication: Factor VIII deficiency
     Dosage: 2600 INTERNATIONAL UNIT, 3/WEEK
     Route: 042
     Dates: start: 20191004, end: 20210208
  2. VONICOG ALFA [Suspect]
     Active Substance: VONICOG ALFA
     Indication: Von Willebrand^s disease
     Dosage: 2600 INTERNATIONAL UNIT, 1/WEEK
     Route: 042
     Dates: start: 20201026, end: 20201026
  3. VONICOG ALFA [Suspect]
     Active Substance: VONICOG ALFA
     Dosage: 2600 INTERNATIONAL UNIT, 1/WEEK
     Route: 042
     Dates: start: 20201102, end: 20201102
  4. VONICOG ALFA [Suspect]
     Active Substance: VONICOG ALFA
     Dosage: 1950 INTERNATIONAL UNIT, 3/WEEK
     Route: 050
     Dates: start: 20211015
  5. VONICOG ALFA [Suspect]
     Active Substance: VONICOG ALFA
     Dosage: 2600 INTERNATIONAL UNIT, BID
     Route: 065
     Dates: start: 20230323, end: 20230330
  6. VONICOG ALFA [Suspect]
     Active Substance: VONICOG ALFA
     Dosage: 2600 MILLIGRAM, BID
     Route: 065
     Dates: start: 20230331, end: 20230404
  7. VONICOG ALFA [Suspect]
     Active Substance: VONICOG ALFA
     Dosage: 2600 INTERNATIONAL UNIT
     Route: 042
     Dates: end: 20210208
  8. VONICOG ALFA [Suspect]
     Active Substance: VONICOG ALFA
     Dosage: 1950 INTERNATIONAL UNIT, 5/WEEK
     Route: 042
  9. VONICOG ALFA [Suspect]
     Active Substance: VONICOG ALFA
     Dosage: 1950 INTERNATIONAL UNIT, Q3WEEKS
     Route: 042
  10. VONICOG ALFA [Suspect]
     Active Substance: VONICOG ALFA
     Dosage: 1950 INTERNATIONAL UNIT, Q3WEEKS
     Route: 042
  11. VONICOG ALFA [Suspect]
     Active Substance: VONICOG ALFA
     Dosage: 1950 INTERNATIONAL UNIT, 5/WEEK
     Route: 042
  12. VONICOG ALFA [Suspect]
     Active Substance: VONICOG ALFA
     Dosage: 2600 INTERNATIONAL UNIT, 3/WEEK
     Route: 042
  13. VONICOG ALFA [Suspect]
     Active Substance: VONICOG ALFA
     Dosage: 2600 INTERNATIONAL UNIT, 3/WEEK
     Route: 042
  14. VONICOG ALFA [Suspect]
     Active Substance: VONICOG ALFA
     Dosage: 2600 INTERNATIONAL UNIT, 3/WEEK
     Route: 042
  15. VONICOG ALFA [Suspect]
     Active Substance: VONICOG ALFA
     Dosage: 2600 INTERNATIONAL UNIT, 5/WEEK
     Route: 042
  16. VONICOG ALFA [Suspect]
     Active Substance: VONICOG ALFA
     Dosage: 1300 INTERNATIONAL UNIT, 3/WEEK
     Route: 042
  17. VONICOG ALFA [Suspect]
     Active Substance: VONICOG ALFA
     Dosage: 650 INTERNATIONAL UNIT, Q3WEEKS
     Route: 042
  18. VONICOG ALFA [Suspect]
     Active Substance: VONICOG ALFA
     Dosage: 2600 INTERNATIONAL UNIT, 3/WEEK
     Route: 042
     Dates: end: 20210915
  19. VONICOG ALFA [Suspect]
     Active Substance: VONICOG ALFA
     Dosage: 650 INTERNATIONAL UNIT
     Route: 042
     Dates: end: 20201026
  20. VONICOG ALFA [Suspect]
     Active Substance: VONICOG ALFA
     Dosage: 2600 INTERNATIONAL UNIT, 1/WEEK
     Route: 042
     Dates: end: 20201102
  21. VONICOG ALFA [Suspect]
     Active Substance: VONICOG ALFA
     Dosage: 1950 INTERNATIONAL UNIT, 3/WEEK
     Route: 042
  22. VONICOG ALFA [Suspect]
     Active Substance: VONICOG ALFA
     Dosage: 1950 INTERNATIONAL UNIT, Q3WEEKS
     Route: 042
  23. VONICOG ALFA [Suspect]
     Active Substance: VONICOG ALFA
     Dosage: 1950 INTERNATIONAL UNIT, Q3WEEKS
     Route: 042
  24. VONICOG ALFA [Suspect]
     Active Substance: VONICOG ALFA
     Dosage: 1300 INTERNATIONAL UNIT, 3/WEEK
     Route: 042
  25. VONICOG ALFA [Suspect]
     Active Substance: VONICOG ALFA
     Dosage: 650 INTERNATIONAL UNIT, 3/WEEK
     Route: 042
  26. VONICOG ALFA [Suspect]
     Active Substance: VONICOG ALFA
     Dosage: 650 INTERNATIONAL UNIT
     Route: 042
  27. VONICOG ALFA [Suspect]
     Active Substance: VONICOG ALFA
     Dosage: 1300 INTERNATIONAL UNIT
     Route: 042
  28. VONICOG ALFA [Suspect]
     Active Substance: VONICOG ALFA
     Dosage: 1950 INTERNATIONAL UNIT, 3/WEEK
     Route: 042
  29. VONICOG ALFA [Suspect]
     Active Substance: VONICOG ALFA
     Dosage: 1950 INTERNATIONAL UNIT, 3/WEEK
     Route: 042
  30. VONICOG ALFA [Suspect]
     Active Substance: VONICOG ALFA
     Dosage: 1950 INTERNATIONAL UNIT, 3/WEEK
     Route: 042
     Dates: end: 20240103
  31. VONICOG ALFA [Suspect]
     Active Substance: VONICOG ALFA
     Dosage: 1950 INTERNATIONAL UNIT, 3/WEEK
     Route: 042
  32. VONICOG ALFA [Suspect]
     Active Substance: VONICOG ALFA
     Dosage: 1950 INTERNATIONAL UNIT, 3/WEEK
     Route: 042
  33. SPIRONOLACTONE [Concomitant]
     Active Substance: SPIRONOLACTONE
     Indication: Product used for unknown indication
     Dosage: 25 MILLIGRAM, QD
     Route: 048
  34. SPIRONOLACTONE [Concomitant]
     Active Substance: SPIRONOLACTONE
     Dosage: 50 MILLIGRAM, QD
     Route: 048
  35. PANTOPRAZOLE SODIUM [Concomitant]
     Active Substance: PANTOPRAZOLE SODIUM
     Indication: Product used for unknown indication
     Dosage: 20 MILLIGRAM, QD
     Route: 048
  36. TORSEMIDE [Concomitant]
     Active Substance: TORSEMIDE
     Indication: Product used for unknown indication
     Dosage: 10 MILLIGRAM, QD
     Route: 048
  37. LACTULOSE [Concomitant]
     Active Substance: LACTULOSE
     Indication: Product used for unknown indication
     Dosage: 20 MILLILITER, QD
     Route: 048
  38. ORNITHINE ASPARTATE [Concomitant]
     Active Substance: ORNITHINE ASPARTATE
     Indication: Product used for unknown indication
     Dosage: 6 GRAM, QD
     Route: 048
  39. ORNITHINE ASPARTATE [Concomitant]
     Active Substance: ORNITHINE ASPARTATE
     Dosage: UNK, QD
     Route: 065
  40. TRANEXAMIC ACID [Concomitant]
     Active Substance: TRANEXAMIC ACID
     Indication: Product used for unknown indication
     Dosage: 1000 MILLIGRAM, TID
     Route: 065
  41. TRANEXAMIC ACID [Concomitant]
     Active Substance: TRANEXAMIC ACID
     Dosage: 500 MILLIGRAM
     Route: 048
     Dates: end: 20230407
  42. OXYGEN [Concomitant]
     Active Substance: OXYGEN
     Indication: Product used for unknown indication
     Dosage: UNK
     Route: 065
  43. TORSEMIDE [Concomitant]
     Active Substance: TORSEMIDE
     Dosage: 10 MILLIGRAM, QD
     Route: 048
  44. LACTULOSE [Concomitant]
     Active Substance: LACTULOSE
     Dosage: 20 MILLIGRAM, QD
     Route: 048
  45. Kalinor [Concomitant]
     Dosage: UNK UNK, TID
     Route: 048
  46. BUPRENORPHINE HYDROCHLORIDE [Concomitant]
     Active Substance: BUPRENORPHINE HYDROCHLORIDE
     Dosage: 0.2 MILLIGRAM, BID
     Route: 048
  47. CIPROFLOXACIN [Concomitant]
     Active Substance: CIPROFLOXACIN
     Dosage: 500 MILLIGRAM, BID
     Route: 048
     Dates: end: 20230407

REACTIONS (47)
  - Cystitis [Recovered/Resolved]
  - Haematoma [Recovered/Resolved]
  - Compartment syndrome [Unknown]
  - Peripheral swelling [Recovering/Resolving]
  - General physical health deterioration [Recovering/Resolving]
  - Ovarian haematoma [Unknown]
  - Ovarian cyst [Unknown]
  - Infection [Recovered/Resolved]
  - Cystitis [Recovered/Resolved]
  - Hepatic cirrhosis [Unknown]
  - Haemarthrosis [Recovered/Resolved]
  - Serratia infection [Recovered/Resolved]
  - Wound infection [Recovered/Resolved]
  - Cerebral haemorrhage [Unknown]
  - Dyspnoea [Not Recovered/Not Resolved]
  - Oxygen saturation decreased [Not Recovered/Not Resolved]
  - Inflammatory marker increased [Not Recovered/Not Resolved]
  - COVID-19 pneumonia [Not Recovered/Not Resolved]
  - Bronchitis [Unknown]
  - Respiratory tract infection viral [Unknown]
  - Thrombosis [Recovering/Resolving]
  - Haemorrhage subcutaneous [Recovering/Resolving]
  - Thrombotic microangiopathy [Not Recovered/Not Resolved]
  - Intra-abdominal haemorrhage [Unknown]
  - Skin laceration [Recovered/Resolved]
  - Wound haemorrhage [Recovered/Resolved]
  - Fall [Recovering/Resolving]
  - Blood calcium increased [Unknown]
  - Head injury [Unknown]
  - Puncture site erythema [Recovered/Resolved]
  - Peripheral swelling [Unknown]
  - Limb injury [Recovering/Resolving]
  - Injury [Recovered/Resolved]
  - Product distribution issue [Unknown]
  - Fatigue [Not Recovered/Not Resolved]
  - Abdominal pain [Unknown]
  - Gait disturbance [Unknown]
  - Cough [Recovered/Resolved]
  - Asthenia [Not Recovered/Not Resolved]
  - COVID-19 [Recovered/Resolved]
  - Puncture site swelling [Recovered/Resolved]
  - Puncture site induration [Recovered/Resolved]
  - Influenza like illness [Unknown]
  - Influenza [Recovered/Resolved]
  - Product use in unapproved indication [Unknown]
  - Incorrect dose administered [Unknown]
  - Product dose omission issue [Unknown]

NARRATIVE: CASE EVENT DATE: 20201026
